FAERS Safety Report 4289875-7 (Version None)
Quarter: 2004Q1

REPORT INFORMATION
  Report Type: 
  Country: None (occurrence: None)
  Receive Date: 20040209
  Receipt Date: 19990812
  Transmission Date: 20041129
  Serious: Yes (Hospitalization, Congenital Anomaly, Other)
  Sender: FDA-Public Use
  Company Number: 10081842

PATIENT
  Age: 1 Day
  Sex: Male
  Weight: 3 kg

DRUGS (16)
  1. ZERIT [Suspect]
     Dosage: STOPPED ON 15-APR-1998 AND RESTARTED ON 10-JUL-1998 AT 60 MG/DAY
     Route: 064
     Dates: start: 19980401, end: 19981208
  2. ZERIT [Suspect]
     Route: 048
     Dates: end: 19990115
  3. VIDEX [Suspect]
     Dosage: STOPPED ON 15-APR-1998 RESTARTED ON 10-JUL-1998
     Route: 064
     Dates: start: 19980401, end: 19981208
  4. VIDEX [Suspect]
     Route: 048
     Dates: end: 19990115
  5. RETROVIR [Suspect]
     Route: 064
     Dates: end: 19980401
  6. RETROVIR [Suspect]
     Dosage: WITHIN 1 HOUR OF DELIVERY
     Route: 042
     Dates: start: 19981208
  7. VIRAMUNE [Suspect]
     Route: 064
     Dates: start: 19980710, end: 19981208
  8. VIRAMUNE [Suspect]
     Route: 048
     Dates: start: 19981211, end: 19981211
  9. NORVIR [Suspect]
     Route: 064
     Dates: end: 19980401
  10. EPIVIR [Suspect]
     Route: 064
     Dates: end: 19980401
  11. BACTRIM DS [Concomitant]
     Route: 064
  12. CLAMOXYL [Concomitant]
     Route: 064
  13. ECONAZOLE NITRATE [Concomitant]
     Route: 064
  14. DAKTARIN [Concomitant]
     Route: 064
  15. TARDYFERON [Concomitant]
     Route: 064
     Dates: start: 19980710, end: 19981208
  16. ERGOCALCIFEROL [Concomitant]
     Route: 064
     Dates: start: 19980710, end: 19981208

REACTIONS (10)
  - ASPARTATE AMINOTRANSFERASE INCREASED [None]
  - BLOOD LACTIC ACID INCREASED [None]
  - CAESAREAN SECTION [None]
  - CLEFT LIP [None]
  - CLEFT LIP AND PALATE [None]
  - CRYPTORCHISM [None]
  - DRUG EXPOSURE DURING PREGNANCY [None]
  - LIPASE INCREASED [None]
  - NASAL CONGESTION [None]
  - NEUTROPENIA [None]
